FAERS Safety Report 8339071-9 (Version None)
Quarter: 2012Q2

REPORT INFORMATION
  Report Type: 
  Country: None (occurrence: None)
  Receive Date: 20120502
  Receipt Date: 20120423
  Transmission Date: 20120825
  Serious: Yes (Hospitalization)
  Sender: FDA-Public Use
  Company Number: DKLU1078399

PATIENT
  Age: 45 Year
  Sex: Female

DRUGS (16)
  1. GLIMEPIRIDE [Concomitant]
  2. TOPIRAMATE [Concomitant]
  3. ZOLOFT [Concomitant]
  4. LOVASTATIN [Concomitant]
  5. NAPROXEN [Concomitant]
  6. LEVOTHYROXINE SODIUM [Concomitant]
  7. VITAMIN D [Concomitant]
  8. KEPPRA [Concomitant]
  9. VITAMIN B6 [Concomitant]
  10. ACETAMINOPHEN WITH CODEINE (LENOLTEC WITH CODEINE NO [Concomitant]
  11. SABRIL [Suspect]
     Indication: COMPLEX PARTIAL SEIZURES
     Dosage: 1500 MG MILLIGRAM(S), 2 IN 1 D, ORAL
     Route: 048
     Dates: start: 20111011
  12. SABRIL [Suspect]
     Indication: EPILEPSY
     Dosage: 1500 MG MILLIGRAM(S), 2 IN 1 D, ORAL
     Route: 048
     Dates: start: 20111011
  13. CLINDAMYCIN [Concomitant]
  14. TRILEPTAL [Concomitant]
  15. FERROUS SULFATE TAB [Concomitant]
  16. CALCIUM CARBONATE [Concomitant]

REACTIONS (5)
  - FEELING DRUNK [None]
  - FALL [None]
  - GAIT DISTURBANCE [None]
  - MENTAL STATUS CHANGES [None]
  - URINARY TRACT INFECTION [None]
